FAERS Safety Report 6655138-5 (Version None)
Quarter: 2010Q1

REPORT INFORMATION
  Report Type: 
  Country: None (occurrence: None)
  Receive Date: 20100317
  Receipt Date: 20100201
  Transmission Date: 20100710
  Serious: No
  Sender: FDA-Public Use
  Company Number: DSA_42528_2010

PATIENT
  Sex: Male

DRUGS (3)
  1. XENAZINE [Suspect]
     Indication: HUNTINGTON'S CHOREA
     Dosage: (DF), (150 MG, (DOSE:  62.5 MG MORNING AND NOON, 25 MG AT BEDTIME)
     Dates: start: 20090204
  2. XENAZINE [Suspect]
     Indication: HUNTINGTON'S CHOREA
     Dosage: (DF), (150 MG, (DOSE:  62.5 MG MORNING AND NOON, 25 MG AT BEDTIME)
     Dates: start: 20100101
  3. BENZONATATE [Concomitant]

REACTIONS (2)
  - OVERDOSE [None]
  - SOMNOLENCE [None]
